FAERS Safety Report 18619446 (Version 4)
Quarter: 2020Q4

REPORT INFORMATION
  Report Type: Spontaneous
  Country: US (occurrence: US)
  Receive Date: 20201215
  Receipt Date: 20201228
  Transmission Date: 20210114
  Serious: Yes (Other)
  Sender: FDA-Public Use
  Company Number: US-PFIZER INC-2020475652

PATIENT
  Age: 75 Year
  Sex: Male

DRUGS (1)
  1. CHAPSTICK MOISTURIZER [Suspect]
     Active Substance: OCTINOXATE\OXYBENZONE\PETROLATUM
     Dosage: UNK
     Dates: end: 2020

REACTIONS (4)
  - Product odour abnormal [Recovering/Resolving]
  - Sputum discoloured [Recovering/Resolving]
  - Lower respiratory tract infection [Recovering/Resolving]
  - Pharyngitis [Recovering/Resolving]

NARRATIVE: CASE EVENT DATE: 2020
